FAERS Safety Report 6640085-5 (Version None)
Quarter: 2010Q1

REPORT INFORMATION
  Report Type: 
  Country: None (occurrence: None)
  Receive Date: 20100318
  Receipt Date: 20100302
  Transmission Date: 20100710
  Serious: Yes (Death, Other)
  Sender: FDA-Public Use
  Company Number: FR-ROCHE-591262

PATIENT
  Age: 55 Year
  Sex: Male

DRUGS (6)
  1. ENFUVIRTIDE [Suspect]
     Indication: HIV INFECTION
     Route: 065
     Dates: start: 20050101, end: 20050701
  2. CO-TRIMOXAZOLE [Suspect]
     Indication: INFECTION PROPHYLAXIS
     Route: 065
     Dates: start: 19950101
  3. TMC114 [Concomitant]
     Indication: HIV INFECTION
     Route: 065
     Dates: start: 20050801
  4. PYRIMETHAMINE TAB [Concomitant]
     Indication: TOXOPLASMOSIS
  5. SULFADIAZINE [Concomitant]
     Indication: TOXOPLASMOSIS
  6. FOLINIC ACID [Concomitant]
     Indication: TOXOPLASMOSIS

REACTIONS (7)
  - FURUNCLE [None]
  - INJECTION SITE REACTION [None]
  - RASH PUSTULAR [None]
  - STAPHYLOCOCCAL ABSCESS [None]
  - STAPHYLOCOCCAL BACTERAEMIA [None]
  - STATUS EPILEPTICUS [None]
  - VIROLOGIC FAILURE [None]
